FAERS Safety Report 7343744-4 (Version None)
Quarter: 2011Q1

REPORT INFORMATION
  Report Type: 
  Country: None (occurrence: None)
  Receive Date: 20110310
  Receipt Date: 20110102
  Transmission Date: 20110831
  Serious: No
  Sender: FDA-Public Use
  Company Number: A0902711A

PATIENT
  Age: 40 Year
  Sex: Male

DRUGS (1)
  1. NICORETTE [Suspect]

REACTIONS (3)
  - EXPIRED DRUG ADMINISTERED [None]
  - DIARRHOEA [None]
  - DRUG INEFFECTIVE [None]
